FAERS Safety Report 7170613-5 (Version None)
Quarter: 2010Q4

REPORT INFORMATION
  Report Type: 
  Country: None (occurrence: None)
  Receive Date: 20101217
  Receipt Date: 20101208
  Transmission Date: 20110411
  Serious: Yes (Hospitalization)
  Sender: FDA-Public Use
  Company Number: A0892595A

PATIENT
  Sex: Male

DRUGS (2)
  1. WELLBUTRIN [Suspect]
     Route: 048
  2. LAMICTAL [Suspect]
     Route: 065

REACTIONS (4)
  - MENTAL DISORDER [None]
  - RASH GENERALISED [None]
  - REACTION TO DRUG EXCIPIENTS [None]
  - URTICARIA [None]
